FAERS Safety Report 16155456 (Version 1)
Quarter: 2019Q2

REPORT INFORMATION
  Report Type: Spontaneous
  Country: US (occurrence: US)
  Receive Date: 20190403
  Receipt Date: 20190403
  Transmission Date: 20190711
  Serious: No
  Sender: FDA-Public Use
  Company Number: US-JNJFOC-20190321176

PATIENT
  Age: 24 Year
  Sex: Male
  Weight: 61.5 kg

DRUGS (2)
  1. VITAMIN D2 [Concomitant]
     Active Substance: ERGOCALCIFEROL
     Route: 065
  2. REMICADE [Suspect]
     Active Substance: INFLIXIMAB
     Indication: CROHN^S DISEASE
     Route: 042
     Dates: start: 20190114

REACTIONS (2)
  - Product dose omission [Unknown]
  - Bronchitis [Unknown]

NARRATIVE: CASE EVENT DATE: 20190311
